FAERS Safety Report 7503709-6 (Version None)
Quarter: 2011Q2

REPORT INFORMATION
  Report Type: 
  Country: None (occurrence: None)
  Receive Date: 20110525
  Receipt Date: 20110517
  Transmission Date: 20111010
  Serious: Yes (Other)
  Sender: FDA-Public Use
  Company Number: US-US-EMD SERONO, INC.-7028499

PATIENT
  Sex: Female
  Weight: 68 kg

DRUGS (3)
  1. REBIF [Suspect]
     Route: 058
     Dates: start: 20080514
  2. UNSPECIFIED MEDICATION [Concomitant]
  3. REBIF [Suspect]
     Indication: MULTIPLE SCLEROSIS
     Route: 058
     Dates: start: 20030623, end: 20071225

REACTIONS (7)
  - FEELING COLD [None]
  - GLUCOSE TOLERANCE IMPAIRED [None]
  - CHILLS [None]
  - IMPAIRED HEALING [None]
  - TINNITUS [None]
  - LIMB INJURY [None]
  - MYALGIA [None]
